FAERS Safety Report 23673878 (Version 1)
Quarter: 2024Q1

REPORT INFORMATION
  Report Type: Spontaneous
  Country: US (occurrence: None)
  Receive Date: 20240325
  Receipt Date: 20240325
  Transmission Date: 20240409
  Serious: Yes (Other)
  Sender: FDA-Public Use
  Company Number: None

PATIENT
  Age: 67 Year
  Sex: Male

DRUGS (5)
  1. ARIPIPRAZOLE [Suspect]
     Active Substance: ARIPIPRAZOLE
     Indication: Major depression
     Dosage: FREQUENCY : AT BEDTIME;?
     Route: 048
     Dates: start: 20240225, end: 20240309
  2. EFFEXOR [Concomitant]
     Active Substance: VENLAFAXINE HYDROCHLORIDE
     Dates: start: 20170726
  3. LOSARTAN [Concomitant]
     Active Substance: LOSARTAN
     Dates: start: 20150101
  4. ROPINIROLE [Concomitant]
     Active Substance: ROPINIROLE
     Dates: start: 20210521
  5. ZOLPIDEM [Concomitant]
     Active Substance: ZOLPIDEM TARTRATE
     Dates: start: 20220325

REACTIONS (1)
  - Blood pressure increased [None]

NARRATIVE: CASE EVENT DATE: 20240309
